APPROVED DRUG PRODUCT: ARICEPT
Active Ingredient: DONEPEZIL HYDROCHLORIDE
Strength: 23MG
Dosage Form/Route: TABLET;ORAL
Application: N022568 | Product #001 | TE Code: AB
Applicant: EISAI INC
Approved: Jul 23, 2010 | RLD: Yes | RS: Yes | Type: RX

PATENTS:
Patent 8481565 | Expires: Oct 4, 2026